FAERS Safety Report 6670800-6 (Version None)
Quarter: 2010Q2

REPORT INFORMATION
  Report Type: 
  Country: None (occurrence: None)
  Receive Date: 20100407
  Receipt Date: 20100322
  Transmission Date: 20101027
  Serious: No
  Sender: FDA-Public Use
  Company Number: US-B.I. PHARMACEUTICALS,INC./RIDGEFIELD-2010-BP-03376BP

PATIENT
  Sex: Female

DRUGS (7)
  1. SPIRIVA [Suspect]
     Indication: CHRONIC OBSTRUCTIVE PULMONARY DISEASE
     Dosage: 18 MCG
     Route: 055
     Dates: start: 20100315
  2. COMBIVENT [Suspect]
     Indication: CHRONIC OBSTRUCTIVE PULMONARY DISEASE
     Route: 055
     Dates: start: 20100215, end: 20100315
  3. ADVAIR DISKUS 100/50 [Concomitant]
     Indication: CHRONIC OBSTRUCTIVE PULMONARY DISEASE
     Route: 055
  4. DIOVAN [Concomitant]
     Indication: HYPERTENSION
  5. XALATAN [Concomitant]
     Indication: GLAUCOMA
  6. ALPHAGAN [Concomitant]
     Indication: GLAUCOMA
  7. EYE DROPS [Concomitant]
     Indication: GLAUCOMA

REACTIONS (3)
  - DYSPHONIA [None]
  - GLAUCOMA [None]
  - MACULAR DEGENERATION [None]
